FAERS Safety Report 4471602-1 (Version None)
Quarter: 2004Q4

REPORT INFORMATION
  Report Type: 
  Country: None (occurrence: None)
  Receive Date: 20041012
  Receipt Date: 20041001
  Transmission Date: 20050328
  Serious: Yes (Other)
  Sender: FDA-Public Use
  Company Number: SE-GLAXOSMITHKLINE-B0347575A

PATIENT
  Age: 13 Year
  Sex: Female

DRUGS (6)
  1. LAMICTAL [Suspect]
     Indication: EPILEPSY
     Dosage: 125MG PER DAY
     Route: 048
     Dates: start: 20021107, end: 20040101
  2. AERIUS [Concomitant]
     Route: 048
  3. ATARAX [Concomitant]
     Route: 065
  4. BETAPRED [Concomitant]
     Route: 065
  5. VENTOLIN [Concomitant]
     Route: 055
  6. SYMBICORT TURBOHALER [Concomitant]
     Route: 055

REACTIONS (2)
  - BLEEDING TIME PROLONGED [None]
  - MUCOSAL HAEMORRHAGE [None]
